FAERS Safety Report 7342902-2 (Version None)
Quarter: 2011Q1

REPORT INFORMATION
  Report Type: 
  Country: None (occurrence: None)
  Receive Date: 20110310
  Receipt Date: 20110304
  Transmission Date: 20110831
  Serious: Yes (Other)
  Sender: FDA-Public Use
  Company Number: US-ELI_LILLY_AND_COMPANY-US201103002855

PATIENT
  Sex: Male
  Weight: 127 kg

DRUGS (12)
  1. GABAPENTIN [Concomitant]
     Indication: RESTLESS LEGS SYNDROME
     Dosage: 1800 MG, 3/D
     Route: 048
  2. TRAMADOL [Concomitant]
     Indication: BACK PAIN
     Dosage: 75 MG, 3/D
     Route: 048
  3. TIZANIDINE [Concomitant]
     Indication: BACK PAIN
     Dosage: 4 MG, DAILY (1/D)
     Route: 048
  4. NORVASC [Concomitant]
     Indication: HYPERTENSION
     Dosage: 10 MG, DAILY (1/D)
     Route: 048
  5. PRASUGREL HYDROCHLORIDE [Suspect]
     Indication: ACUTE CORONARY SYNDROME
     Dosage: 60 MG, ONCE
     Dates: start: 20101118, end: 20101118
  6. PRASUGREL HYDROCHLORIDE [Suspect]
     Dosage: 10 MG, DAILY (1/D)
     Dates: start: 20101119
  7. SIMVASTATIN [Concomitant]
     Indication: HYPERLIPIDAEMIA
     Dosage: 80 MG, DAILY (1/D)
     Route: 048
  8. HYDROCHLOROTHIAZIDE [Concomitant]
     Indication: HYPERTENSION
     Dosage: 12.5 MG, DAILY (1/D)
     Route: 048
  9. BYSTOLIC [Concomitant]
     Indication: HYPERTENSION
     Dosage: 5 MG, DAILY (1/D)
     Route: 048
  10. VALSARTAN [Concomitant]
     Indication: HYPERTENSION
     Dosage: 320 MG, DAILY (1/D)
     Route: 048
  11. ASPIRIN [Concomitant]
     Dosage: 81 MG, DAILY (1/D)
  12. IMDUR [Concomitant]
     Indication: ANGINA PECTORIS
     Dosage: 30 MG, DAILY (1/D)
     Route: 048
     Dates: start: 20101004

REACTIONS (1)
  - DYSPNOEA EXERTIONAL [None]
